FAERS Safety Report 22040137 (Version 1)
Quarter: 2023Q1

REPORT INFORMATION
  Report Type: Spontaneous
  Country: FR (occurrence: FR)
  Receive Date: 20230227
  Receipt Date: 20230227
  Transmission Date: 20230418
  Serious: Yes (Death)
  Sender: FDA-Public Use
  Company Number: None

PATIENT
  Age: 65 Year
  Sex: Male
  Weight: 82.5 kg

DRUGS (2)
  1. VIMPAT [Suspect]
     Active Substance: LACOSAMIDE
     Indication: Epilepsy
     Dosage: 200 MILLIGRAM, ONCE DAILY (QD)
     Route: 048
     Dates: start: 202208
  2. VALPROATE SODIUM [Suspect]
     Active Substance: VALPROATE SODIUM
     Indication: Epilepsy
     Dosage: 1500 MILLIGRAM, ONCE DAILY (QD)
     Route: 048

REACTIONS (1)
  - Altered state of consciousness [Fatal]

NARRATIVE: CASE EVENT DATE: 20220819
